FAERS Safety Report 5917142-1 (Version None)
Quarter: 2008Q4

REPORT INFORMATION
  Report Type: 
  Country: None (occurrence: None)
  Receive Date: 20081014
  Receipt Date: 20081003
  Transmission Date: 20090506
  Serious: Yes (Other)
  Sender: FDA-Public Use
  Company Number: CA-JNJFOC-20081001361

PATIENT
  Sex: Male
  Weight: 93.6 kg

DRUGS (3)
  1. REMICADE [Suspect]
     Indication: ANKYLOSING SPONDYLITIS
     Route: 042
  2. DYAZIDE [Concomitant]
  3. VOLTAREN [Concomitant]

REACTIONS (1)
  - SKIN CANCER [None]
